FAERS Safety Report 20364832 (Version 4)
Quarter: 2025Q3

REPORT INFORMATION
  Report Type: Spontaneous
  Country: JP (occurrence: JP)
  Receive Date: 20220122
  Receipt Date: 20250705
  Transmission Date: 20251021
  Serious: Yes (Death, Other)
  Sender: UNITED THERAPEUTICS
  Company Number: JP-UNITED THERAPEUTICS-UNT-2021-022011

PATIENT
  Age: 9 Year
  Sex: Male
  Weight: 28.7 kg

DRUGS (12)
  1. UNITUXIN [Suspect]
     Active Substance: DINUTUXIMAB
     Indication: Neuroblastoma recurrent
     Route: 041
     Dates: start: 20211019, end: 20211022
  2. UNITUXIN [Suspect]
     Active Substance: DINUTUXIMAB
     Route: 041
     Dates: start: 20211122, end: 20211125
  3. UNITUXIN [Suspect]
     Active Substance: DINUTUXIMAB
     Route: 041
     Dates: start: 20211220, end: 20211223
  4. MORPHINE HYDROCHLORIDE [Suspect]
     Active Substance: MORPHINE HYDROCHLORIDE
     Indication: Pain
     Route: 041
     Dates: start: 20211019, end: 20211020
  5. MORPHINE HYDROCHLORIDE [Suspect]
     Active Substance: MORPHINE HYDROCHLORIDE
     Indication: Prophylaxis
  6. FILGRASTIM [Suspect]
     Active Substance: FILGRASTIM
     Indication: Neuroblastoma recurrent
     Dates: start: 20211016, end: 20211029
  7. FILGRASTIM [Suspect]
     Active Substance: FILGRASTIM
     Dates: start: 20211217, end: 20211230
  8. TECELEUKIN [Suspect]
     Active Substance: TECELEUKIN
     Indication: Neuroblastoma recurrent
     Dates: start: 20211115, end: 20211118
  9. TECELEUKIN [Suspect]
     Active Substance: TECELEUKIN
     Dates: start: 20211122, end: 20211125
  10. FENTANYL [Concomitant]
     Active Substance: FENTANYL
     Indication: Prophylaxis
     Dates: start: 20211021, end: 20211022
  11. FENTANYL [Concomitant]
     Active Substance: FENTANYL
     Route: 040
     Dates: start: 20211122, end: 20211125
  12. FENTANYL [Concomitant]
     Active Substance: FENTANYL
     Route: 040
     Dates: start: 20211220, end: 20211223

REACTIONS (16)
  - Neuroblastoma recurrent [Fatal]
  - Urinary retention [Recovered/Resolved]
  - Pyrexia [Recovered/Resolved]
  - Abdominal pain [Recovered/Resolved]
  - Conjunctival hyperaemia [Recovering/Resolving]
  - C-reactive protein increased [Recovered/Resolved]
  - Epistaxis [Recovered/Resolved]
  - Pyrexia [Recovered/Resolved]
  - C-reactive protein increased [Recovered/Resolved]
  - Eye pruritus [Recovering/Resolving]
  - Photophobia [Recovered/Resolved]
  - Pain in extremity [Recovering/Resolving]
  - Pyrexia [Recovered/Resolved]
  - C-reactive protein increased [Recovered/Resolved]
  - Abdominal pain [Recovered/Resolved]
  - Pain in extremity [Recovered/Resolved]

NARRATIVE: CASE EVENT DATE: 20211020
